FAERS Safety Report 4698728-1 (Version None)
Quarter: 2005Q2

REPORT INFORMATION
  Report Type: 
  Country: None (occurrence: None)
  Receive Date: 20050622
  Receipt Date: 20050328
  Transmission Date: 20051028
  Serious: Yes (Hospitalization)
  Sender: FDA-Public Use
  Company Number: SU-2005-003337

PATIENT
  Sex: Female

DRUGS (2)
  1. BENICAR HCT [Suspect]
     Indication: HYPERTENSION
     Dosage: 40.125 MG QD PO
     Route: 048
     Dates: end: 20050326
  2. UNSPECIFIED BETA BLOCKER [Concomitant]

REACTIONS (1)
  - BLOOD POTASSIUM INCREASED [None]
